FAERS Safety Report 14477595 (Version 1)
Quarter: 2018Q1

REPORT INFORMATION
  Report Type: Report from Study
  Country: GB (occurrence: GB)
  Receive Date: 20180201
  Receipt Date: 20180201
  Transmission Date: 20180509
  Serious: No
  Sender: FDA-Public Use
  Company Number: GB-EXELIXIS-CABO-17009362

PATIENT
  Age: 71 Year
  Sex: Female
  Weight: 82 kg

DRUGS (2)
  1. CABOMETYX [Suspect]
     Active Substance: CABOZANTINIB S-MALATE
     Dosage: 40 MG, QOD
  2. CABOMETYX [Suspect]
     Active Substance: CABOZANTINIB S-MALATE
     Indication: RENAL CELL CARCINOMA
     Dosage: 40 MG, QD
     Dates: start: 20170321, end: 20170425

REACTIONS (11)
  - Oropharyngeal pain [Unknown]
  - Fatigue [Recovered/Resolved]
  - Dysgeusia [Unknown]
  - Nausea [Recovered/Resolved]
  - Constipation [Unknown]
  - Arthralgia [Unknown]
  - Depressed mood [Unknown]
  - Orthostatic hypotension [Unknown]
  - Stomatitis [Recovered/Resolved]
  - Hypophagia [Recovered/Resolved]
  - Diarrhoea [Recovered/Resolved]

NARRATIVE: CASE EVENT DATE: 20170417
